FAERS Safety Report 23659478 (Version 1)
Quarter: 2024Q1

REPORT INFORMATION
  Report Type: Spontaneous
  Country: US (occurrence: US)
  Receive Date: 20240321
  Receipt Date: 20240321
  Transmission Date: 20240410
  Serious: No
  Sender: FDA-Public Use
  Company Number: US-002147023-NVSC2024US060801

PATIENT
  Sex: Male

DRUGS (1)
  1. AFINITOR [Suspect]
     Active Substance: EVEROLIMUS
     Indication: Product used for unknown indication
     Route: 065

REACTIONS (7)
  - Hypersensitivity [Unknown]
  - Skin atrophy [Unknown]
  - Coagulopathy [Unknown]
  - Contusion [Unknown]
  - Asthenia [Unknown]
  - Diarrhoea [Unknown]
  - Hypophagia [Unknown]
